FAERS Safety Report 10402878 (Version 1)
Quarter: 2014Q3

REPORT INFORMATION
  Report Type: Spontaneous
  Country: CZ (occurrence: CZ)
  Receive Date: 20140822
  Receipt Date: 20140822
  Transmission Date: 20150326
  Serious: Yes (Hospitalization, Other)
  Sender: FDA-Public Use
  Company Number: CZ-ACTAVIS-2014-18110

PATIENT
  Age: 26 Year
  Sex: Female

DRUGS (2)
  1. TOPIRAMATE. [Suspect]
     Active Substance: TOPIRAMATE
     Indication: MIGRAINE PROPHYLAXIS
     Dosage: 25 MG, DAILY
     Route: 048
  2. TRIMETHOPRIM-SULFAMETHOXAZOLE [Suspect]
     Active Substance: SULFAMETHOXAZOLE\TRIMETHOPRIM
     Indication: PHARYNGITIS
     Dosage: UNK UNK, DAILY; 20MG/100MG
     Route: 065

REACTIONS (5)
  - Myopia [Recovered/Resolved]
  - Angle closure glaucoma [Recovered/Resolved]
  - Vomiting [Unknown]
  - Paraesthesia [Unknown]
  - Choroidal effusion [Recovered/Resolved]
